FAERS Safety Report 6306504-9 (Version None)
Quarter: 2009Q3

REPORT INFORMATION
  Report Type: 
  Country: None (occurrence: None)
  Receive Date: 20090812
  Receipt Date: 20090811
  Transmission Date: 20100115
  Serious: Yes (Other)
  Sender: FDA-Public Use
  Company Number: A0801657A

PATIENT
  Age: 21 Year
  Sex: Female

DRUGS (1)
  1. NICORETTE [Suspect]
     Indication: DRUG USE FOR UNKNOWN INDICATION
     Dosage: 2GUM UNKNOWN
     Route: 002
     Dates: start: 20080101

REACTIONS (6)
  - ABASIA [None]
  - ASTHENIA [None]
  - DYSPNOEA [None]
  - PARALYSIS [None]
  - SUICIDAL IDEATION [None]
  - WALKING AID USER [None]
